FAERS Safety Report 5751153-4 (Version None)
Quarter: 2008Q2

REPORT INFORMATION
  Report Type: 
  Country: None (occurrence: None)
  Receive Date: 20080528
  Receipt Date: 20080516
  Transmission Date: 20081010
  Serious: Yes (Other)
  Sender: FDA-Public Use
  Company Number: US-PFIZER INC-2008042661

PATIENT
  Sex: Female
  Weight: 93 kg

DRUGS (2)
  1. DILANTIN [Suspect]
     Indication: CONVULSION
  2. PHENYTOIN [Suspect]

REACTIONS (9)
  - ANGINA PECTORIS [None]
  - ANTICONVULSANT DRUG LEVEL DECREASED [None]
  - CARDIAC DISORDER [None]
  - CARDIAC FLUTTER [None]
  - GAIT DISTURBANCE [None]
  - MALAISE [None]
  - MIGRAINE [None]
  - REACTION TO COLOURING [None]
  - VISION BLURRED [None]
